FAERS Safety Report 9868186 (Version 1)
Quarter: 2014Q1

REPORT INFORMATION
  Report Type: Spontaneous
  Country: US (occurrence: US)
  Receive Date: 20140204
  Receipt Date: 20140204
  Transmission Date: 20141002
  Serious: Yes (Other)
  Sender: FDA-Public Use
  Company Number: PHHY2014US011523

PATIENT
  Sex: Male
  Weight: 1.8 kg

DRUGS (3)
  1. NEORAL [Suspect]
     Dosage: MATERNAL DOSE:300 MG, BID
     Route: 064
  2. PREDNISONE [Suspect]
     Dosage: MATERNAL DOSE:10 MG, A DAY
     Route: 064
  3. AZATHIOPRINE [Suspect]
     Dosage: MATERNAL DOSE:100 MG, A DAY
     Route: 064

REACTIONS (4)
  - Low birth weight baby [Unknown]
  - Premature baby [Unknown]
  - Hyperbilirubinaemia [Unknown]
  - Foetal exposure during pregnancy [Unknown]
